FAERS Safety Report 5939509-8 (Version None)
Quarter: 2008Q4

REPORT INFORMATION
  Report Type: 
  Country: None (occurrence: None)
  Receive Date: 20081030
  Receipt Date: 20081023
  Transmission Date: 20090506
  Serious: Yes (Death)
  Sender: FDA-Public Use
  Company Number: SPV1-2008-02301

PATIENT
  Age: 56 Year
  Sex: Female

DRUGS (1)
  1. FOSRENOL [Suspect]
     Dosage: 1000 MG, WITH EACH MEAL, ORAL
     Route: 048

REACTIONS (1)
  - DEATH [None]
